FAERS Safety Report 7511050-0 (Version None)
Quarter: 2011Q2

REPORT INFORMATION
  Report Type: 
  Country: None (occurrence: None)
  Receive Date: 20110531
  Receipt Date: 20110517
  Transmission Date: 20111010
  Serious: Yes (Death, Hospitalization, Other)
  Sender: FDA-Public Use
  Company Number: US-CELGENEUS-163-21880-11042966

PATIENT
  Sex: Female

DRUGS (37)
  1. AMBIEN [Concomitant]
     Dosage: 1-2
     Route: 048
  2. CALCIUM PLUS WITH VITAMIN D [Concomitant]
     Dosage: 2 TABLET
     Route: 065
  3. SODIUM PHOSPHATES [Concomitant]
     Indication: CONSTIPATION
     Dosage: 50 MICROGRAM
     Route: 065
  4. MAGIC MOUTH WASH [Concomitant]
     Dosage: SWISH AND SWALLOW
     Route: 048
  5. ACYCLOVIR [Concomitant]
     Dosage: 400 MILLIGRAM
     Route: 048
  6. SENNA-MINT WAF [Concomitant]
     Dosage: 1-4
     Route: 048
  7. LACTULOSE [Concomitant]
     Indication: CONSTIPATION
     Dosage: 20 GRAM
     Route: 048
  8. MORPHINE [Concomitant]
     Route: 051
  9. COREG [Concomitant]
     Dosage: 3.125 MILLIGRAM
     Route: 065
  10. POTASSIUM CHLORIDE [Concomitant]
     Dosage: 25 MICROGRAM
     Route: 065
  11. MAGNESIUM CITRATE [Concomitant]
     Indication: CONSTIPATION
     Dosage: 150-300 ML
     Route: 048
  12. SCOPOLAMINE [Concomitant]
     Indication: CONSTIPATION
     Dosage: 1.5 MG PER 72 HOURS
     Route: 062
  13. REVLIMID [Suspect]
     Indication: MULTIPLE MYELOMA
     Dosage: 15 MILLIGRAM
     Route: 048
     Dates: start: 20110406
  14. ASPIRIN [Concomitant]
     Dosage: 81 MILLIGRAM
     Route: 065
  15. MORPHINE [Concomitant]
     Route: 051
  16. ACETAMINOPHEN [Concomitant]
     Dosage: 1-2
     Route: 048
  17. POTASSIUM CHLORIDE [Concomitant]
     Dosage: 50 MICROGRAM
     Route: 065
  18. REVLIMID [Suspect]
     Dosage: 25 MILLIGRAM
     Route: 048
     Dates: start: 20091230, end: 20100429
  19. LIDOCAINE [Concomitant]
     Dosage: 1
     Route: 061
  20. PRILOSEC [Concomitant]
     Dosage: 20 MILLIGRAM
     Route: 065
  21. DULCOLAX [Concomitant]
     Indication: CONSTIPATION
     Dosage: 10 MILLIGRAM
     Route: 054
  22. REVLIMID [Suspect]
     Route: 048
     Dates: start: 20081201
  23. VELCADE [Concomitant]
     Indication: MULTIPLE MYELOMA
     Dosage: 1.3 MILLIGRAM/SQ. METER
     Route: 051
     Dates: start: 20110406
  24. ALLEGRA [Concomitant]
     Dosage: 180/240MG
     Route: 048
  25. MS CONTIN [Concomitant]
     Dosage: 60 MILLIGRAM
     Route: 065
  26. ONDANSETRON [Concomitant]
     Dosage: 8 MILLIGRAM
     Route: 065
  27. REVLIMID [Suspect]
     Dosage: 25 MILLIGRAM
     Route: 048
     Dates: start: 20100617
  28. BACLOFEN [Concomitant]
     Indication: HICCUPS
     Dosage: 10 MILLIGRAM
     Route: 048
  29. CELEXA [Concomitant]
     Dosage: 10 MILLIGRAM
     Route: 065
  30. COMPAZINE [Concomitant]
     Dosage: 10 MILLIGRAM
     Route: 065
  31. LEVOTHYROXINE SODIUM [Concomitant]
     Dosage: 1
     Route: 048
  32. MIRALAX [Concomitant]
     Dosage: 17 GRAM
     Route: 065
  33. MORPHINE [Concomitant]
     Dosage: 15 MILLIGRAM
     Route: 065
  34. CALCITRIOL [Concomitant]
     Dosage: .25 MICROGRAM
     Route: 065
  35. CIPROFLOXACIN [Concomitant]
     Dosage: 500 MILLIGRAM
     Route: 065
  36. DEXAMETHASONE [Concomitant]
     Indication: MULTIPLE MYELOMA
     Dosage: ORAL OR IV
     Route: 065
     Dates: start: 20110406
  37. LYRICA [Concomitant]
     Dosage: 100 MILLIGRAM
     Route: 048

REACTIONS (9)
  - HYPERCALCAEMIA [None]
  - HERPES ZOSTER [None]
  - PANCYTOPENIA [None]
  - MULTIPLE MYELOMA [None]
  - DEATH [None]
  - TREMOR [None]
  - RENAL FAILURE ACUTE [None]
  - FATIGUE [None]
  - PYREXIA [None]
